FAERS Safety Report 12355036 (Version 1)
Quarter: 2016Q2

REPORT INFORMATION
  Report Type: Spontaneous
  Country: US (occurrence: US)
  Receive Date: 20160511
  Receipt Date: 20160511
  Transmission Date: 20160815
  Serious: No
  Sender: FDA-Public Use
  Company Number: US-ACTAVIS-2015-26392

PATIENT
  Age: 6 Year
  Sex: Male
  Weight: 22.68 kg

DRUGS (4)
  1. IBUPROFEN OTC BUBBLEGUM (AMALLC) [Suspect]
     Active Substance: IBUPROFEN
     Indication: PAIN
     Dosage: 10 ML, Q24H
     Route: 048
     Dates: start: 201510
  2. ACETAMINOPHEN. [Suspect]
     Active Substance: ACETAMINOPHEN
     Indication: PRODUCT USED FOR UNKNOWN INDICATION
     Dosage: UNK UNK, UNKNOWN
     Route: 065
     Dates: start: 201510
  3. IBUPROFEN OTC BUBBLEGUM (AMALLC) [Suspect]
     Active Substance: IBUPROFEN
     Dosage: 10 ML, EVERY 12 HOURS
     Route: 048
     Dates: start: 201510, end: 201510
  4. AMOXICILLIN. [Suspect]
     Active Substance: AMOXICILLIN
     Indication: PRODUCT USED FOR UNKNOWN INDICATION
     Dosage: UNK UNK, UNKNOWN
     Route: 065
     Dates: start: 201510

REACTIONS (1)
  - Blood glucose increased [Recovering/Resolving]

NARRATIVE: CASE EVENT DATE: 201510
